FAERS Safety Report 8078247-5 (Version None)
Quarter: 2012Q1

REPORT INFORMATION
  Report Type: 
  Country: None (occurrence: None)
  Receive Date: 20120127
  Receipt Date: 20110104
  Transmission Date: 20120608
  Serious: No
  Sender: FDA-Public Use
  Company Number: US-ABBOTT-08P-163-0495094-00

PATIENT
  Sex: Female
  Weight: 68.1 kg

DRUGS (3)
  1. HUMIRA [Suspect]
     Indication: RHEUMATOID ARTHRITIS
     Dates: start: 20080101
  2. METHOTREXATE [Concomitant]
     Indication: RHEUMATOID ARTHRITIS
  3. HUMIRA [Suspect]
     Indication: RHEUMATOID ARTHRITIS
     Dates: start: 20071101

REACTIONS (9)
  - COUGH [None]
  - CHILLS [None]
  - NASAL CONGESTION [None]
  - ARTHRALGIA [None]
  - DRUG INEFFECTIVE [None]
  - RESPIRATORY TRACT CONGESTION [None]
  - INCREASED UPPER AIRWAY SECRETION [None]
  - PYREXIA [None]
  - BRONCHITIS [None]
